FAERS Safety Report 19755714 (Version 2)
Quarter: 2021Q3

REPORT INFORMATION
  Report Type: Spontaneous
  Country: US (occurrence: US)
  Receive Date: 20210827
  Receipt Date: 20210913
  Transmission Date: 20211014
  Serious: No
  Sender: FDA-Public Use
  Company Number: US-GW PHARMA-202108USGW04137

PATIENT

DRUGS (1)
  1. EPIDIOLEX [Suspect]
     Active Substance: CANNABIDIOL
     Indication: EPILEPSY
     Dosage: 23.63 MG/KG/DAY, 100 MILLIGRAM, TID (FIRST SHIPPED ON 30 MAR 2021)
     Route: 048
     Dates: start: 2021

REACTIONS (3)
  - Off label use [Unknown]
  - Therapy responder [Unknown]
  - Prescribed overdose [Unknown]
